FAERS Safety Report 16435817 (Version 1)
Quarter: 2019Q2

REPORT INFORMATION
  Report Type: Spontaneous
  Country: CN (occurrence: CN)
  Receive Date: 20190614
  Receipt Date: 20190614
  Transmission Date: 20190711
  Serious: No
  Sender: FDA-Public Use
  Company Number: CN-B. BRAUN MEDICAL INC.-2068248

PATIENT
  Age: 46 Year
  Sex: Male
  Weight: 64 kg

DRUGS (1)
  1. HESPAN [Suspect]
     Active Substance: HETASTARCH\SODIUM CHLORIDE
     Indication: CEREBRAL HYPOPERFUSION
     Route: 041

REACTIONS (1)
  - Rash [None]
